FAERS Safety Report 4393383-2 (Version None)
Quarter: 2004Q3

REPORT INFORMATION
  Report Type: 
  Country: None (occurrence: None)
  Receive Date: 20040701
  Receipt Date: 20040621
  Transmission Date: 20050211
  Serious: Yes (Death)
  Sender: FDA-Public Use
  Company Number: 2004216600JP

PATIENT
  Age: 68 Year
  Sex: Male
  Weight: 62.4 kg

DRUGS (16)
  1. EPIRUBICIN [Suspect]
     Indication: HEPATIC NEOPLASM MALIGNANT
     Dosage: 40 MG/DAY, CYCLIC, 60 MG, INTRA-ARTERIAL
     Route: 013
     Dates: start: 20030517
  2. EPIRUBICIN [Suspect]
     Indication: HEPATIC NEOPLASM MALIGNANT
     Dosage: 40 MG/DAY, CYCLIC, 60 MG, INTRA-ARTERIAL
     Route: 013
     Dates: start: 20031008
  3. EPIRUBICIN [Suspect]
     Indication: HEPATIC NEOPLASM MALIGNANT
     Dosage: 40 MG/DAY, CYCLIC, 60 MG, INTRA-ARTERIAL
     Route: 013
     Dates: start: 20031112
  4. EPIRUBICIN [Suspect]
     Indication: HEPATIC NEOPLASM MALIGNANT
     Dosage: 40 MG/DAY, CYCLIC, 60 MG, INTRA-ARTERIAL
     Route: 013
     Dates: start: 20040517
  5. ... [Suspect]
     Indication: HEPATIC NEOPLASM MALIGNANT
     Dosage: 60 MG, INTRA-ARTERIAL
     Route: 013
     Dates: start: 20031112
  6. ... [Suspect]
     Indication: HEPATIC NEOPLASM MALIGNANT
     Dosage: 60 MG, INTRA-ARTERIAL
     Route: 013
     Dates: start: 20031008
  7. ... [Suspect]
     Indication: HEPATIC NEOPLASM MALIGNANT
     Dosage: 40 MG, INTR-ARTERIAL
     Route: 013
     Dates: start: 20030517
  8. LIPIODOL ULTR-FLUID (EHTIODIZED OIL) [Concomitant]
  9. HEPARIN [Concomitant]
  10. NORVASC [Concomitant]
  11. RENIVACE [Concomitant]
  12. LANSOPRAZOLE [Concomitant]
  13. ALLOPURINOL [Concomitant]
  14. MUCOSTA (REBAMIPIDE) [Concomitant]
  15. FERROMIA (FERROUS CITRATE) [Concomitant]
  16. VOLTAREN [Concomitant]

REACTIONS (5)
  - CARDIAC DISORDER [None]
  - CARDIAC FAILURE CONGESTIVE [None]
  - DRUG EFFECT DECREASED [None]
  - PYREXIA [None]
  - SUDDEN DEATH [None]
